FAERS Safety Report 17061556 (Version 1)
Quarter: 2019Q4

REPORT INFORMATION
  Report Type: Report from Study
  Country: CA (occurrence: CA)
  Receive Date: 20191121
  Receipt Date: 20191121
  Transmission Date: 20200122
  Serious: Yes (Other)
  Sender: FDA-Public Use
  Company Number: CA-HLSUS-2019-CA-001585

PATIENT
  Age: 23 Year
  Sex: Female

DRUGS (1)
  1. CLOZAPINE. [Suspect]
     Active Substance: CLOZAPINE
     Indication: SCHIZOPHRENIA
     Route: 065

REACTIONS (14)
  - Anosognosia [Unknown]
  - Drug ineffective [Unknown]
  - Metabolic disorder [Unknown]
  - Blood glucose increased [Unknown]
  - Condition aggravated [Unknown]
  - Dyskinesia [Unknown]
  - Adverse drug reaction [Unknown]
  - Disturbance in social behaviour [Unknown]
  - Personality change [Unknown]
  - Blood prolactin abnormal [Unknown]
  - Dystonia [Unknown]
  - Sexual dysfunction [Unknown]
  - Sedation [Unknown]
  - Suicide attempt [Unknown]
